FAERS Safety Report 5448263-8 (Version None)
Quarter: 2007Q3

REPORT INFORMATION
  Report Type: 
  Country: None (occurrence: None)
  Receive Date: 20070911
  Receipt Date: 20070905
  Transmission Date: 20080115
  Serious: Yes (Other)
  Sender: FDA-Public Use
  Company Number: PHEH2007US11917

PATIENT
  Sex: Female

DRUGS (3)
  1. WELLBUTRIN SR [Suspect]
  2. PROZAC [Suspect]
  3. TRILEPTAL [Suspect]

REACTIONS (3)
  - AFFECT LABILITY [None]
  - FEELING ABNORMAL [None]
  - SUICIDAL IDEATION [None]
